FAERS Safety Report 18178694 (Version 1)
Quarter: 2020Q3

REPORT INFORMATION
  Report Type: Spontaneous
  Country: US (occurrence: US)
  Receive Date: 20200820
  Receipt Date: 20200820
  Transmission Date: 20201103
  Serious: Yes (Other)
  Sender: FDA-Public Use
  Company Number: US-BAUSCH-BL-2020-023133

PATIENT
  Sex: Male

DRUGS (3)
  1. MESTINON [Suspect]
     Active Substance: PYRIDOSTIGMINE BROMIDE
     Indication: DYSKINESIA
     Route: 065
     Dates: end: 20200605
  2. MESTINON [Suspect]
     Active Substance: PYRIDOSTIGMINE BROMIDE
     Route: 065
  3. SOLIRIS [Suspect]
     Active Substance: ECULIZUMAB
     Indication: MYASTHENIA GRAVIS
     Dosage: 10 MG/ML
     Route: 065

REACTIONS (8)
  - Post procedural fever [Recovered/Resolved]
  - Thyroid cancer [Unknown]
  - Nausea [Recovered/Resolved]
  - Diarrhoea [Unknown]
  - Dyskinesia [Recovered/Resolved]
  - Gait disturbance [Unknown]
  - Nephrolithiasis [Unknown]
  - Skin cancer [Unknown]

NARRATIVE: CASE EVENT DATE: 2020
